FAERS Safety Report 13338593 (Version 2)
Quarter: 2017Q1

REPORT INFORMATION
  Report Type: Spontaneous
  Country: GB (occurrence: GB)
  Receive Date: 20170315
  Receipt Date: 20170324
  Transmission Date: 20170428
  Serious: Yes (Other)
  Sender: FDA-Public Use
  Company Number: GB-PFIZER INC-2017103771

PATIENT
  Sex: Female

DRUGS (3)
  1. MAGNESIUM SULPHATE [Concomitant]
     Active Substance: MAGNESIUM SULFATE
     Dosage: UNK
     Route: 064
  2. VENLAFAXINE HCL [Suspect]
     Active Substance: VENLAFAXINE HYDROCHLORIDE
     Indication: DEPRESSION
     Dosage: 150 MG, 2X/DAY (150 MG VENLAFAXINE TWICE DAILY )
     Route: 064
  3. INSULIN [Concomitant]
     Active Substance: INSULIN NOS
     Indication: TYPE 1 DIABETES MELLITUS
     Dosage: UNK
     Route: 064

REACTIONS (4)
  - Convulsion neonatal [Recovered/Resolved]
  - Withdrawal syndrome [Recovered/Resolved]
  - Premature baby [Recovered/Resolved]
  - Maternal exposure during pregnancy [Recovered/Resolved]
